FAERS Safety Report 6128805-X (Version None)
Quarter: 2009Q1

REPORT INFORMATION
  Report Type: 
  Country: None (occurrence: None)
  Receive Date: 20090323
  Receipt Date: 20090316
  Transmission Date: 20090719
  Serious: Yes (Life-Threatening, Hospitalization, Other)
  Sender: FDA-Public Use
  Company Number: US-GILEAD-2009-0020063

PATIENT
  Sex: Female
  Weight: 105 kg

DRUGS (11)
  1. LETAIRIS [Suspect]
     Indication: PULMONARY ARTERIAL HYPERTENSION
     Route: 048
     Dates: start: 20080523
  2. TRICOR [Suspect]
     Route: 048
  3. ZETIA [Suspect]
  4. SPIRONOLACTONE [Concomitant]
     Route: 048
  5. SPIRIVA [Concomitant]
  6. NEURONTIN [Concomitant]
     Route: 048
  7. AVAPRO [Concomitant]
     Route: 048
  8. PREMARIN [Concomitant]
     Route: 048
  9. CLONAZEPAM [Concomitant]
     Route: 048
  10. K-DUR [Concomitant]
     Route: 048
  11. DURAGESIC-100 [Concomitant]

REACTIONS (2)
  - HEPATIC FAILURE [None]
  - LIVER FUNCTION TEST ABNORMAL [None]
